FAERS Safety Report 18938537 (Version 1)
Quarter: 2021Q1

REPORT INFORMATION
  Report Type: Spontaneous
  Country: US (occurrence: US)
  Receive Date: 20210224
  Receipt Date: 20210224
  Transmission Date: 20210420
  Serious: Yes (Death)
  Sender: FDA-Public Use
  Company Number: None

PATIENT
  Age: 51 Year
  Sex: Female

DRUGS (1)
  1. AXICABTAGENE CILOLEUCEL [Suspect]
     Active Substance: AXICABTAGENE CILOLEUCEL
     Indication: DIFFUSE LARGE B-CELL LYMPHOMA
     Dates: start: 20201223, end: 20201223

REACTIONS (12)
  - Pyrexia [None]
  - Clostridium test positive [None]
  - Hypotension [None]
  - Fluid overload [None]
  - Infection [None]
  - Neurotoxicity [None]
  - Pneumonia [None]
  - Hypoxia [None]
  - Neutropenia [None]
  - Cough [None]
  - Tachycardia [None]
  - Dyspnoea [None]

NARRATIVE: CASE EVENT DATE: 20201230
